FAERS Safety Report 9003096 (Version 1)
Quarter: 2013Q1

REPORT INFORMATION
  Report Type: Spontaneous
  Country: US (occurrence: US)
  Receive Date: 20130108
  Receipt Date: 20130108
  Transmission Date: 20140127
  Serious: Yes (Death)
  Sender: FDA-Public Use
  Company Number: US-ASTRAZENECA-2013SE01174

PATIENT
  Age: 55 Year
  Sex: Female

DRUGS (5)
  1. LISINOPRIL [Suspect]
     Route: 048
  2. DILTIAZEM [Suspect]
     Route: 048
  3. CARISOPRODOL [Suspect]
     Route: 048
  4. TRIAZOLAM [Suspect]
     Route: 048
  5. ALPRAZOLAM [Suspect]
     Route: 048

REACTIONS (2)
  - Completed suicide [Fatal]
  - Toxicity to various agents [Fatal]
